FAERS Safety Report 5444637-X (Version None)
Quarter: 2007Q3

REPORT INFORMATION
  Report Type: 
  Country: None (occurrence: None)
  Receive Date: 20070906
  Receipt Date: 20070502
  Transmission Date: 20080115
  Serious: No
  Sender: FDA-Public Use
  Company Number: A0619757A

PATIENT
  Age: 58 Year
  Sex: Male

DRUGS (17)
  1. REQUIP [Suspect]
     Indication: RESTLESS LEGS SYNDROME
     Route: 048
     Dates: start: 20060905
  2. CELLCEPT [Concomitant]
     Dosage: 500MG TWICE PER DAY
     Route: 048
  3. CLONAZEPAM [Concomitant]
     Dosage: 2MG AT NIGHT
     Route: 048
  4. ALLOPURINOL [Concomitant]
     Dosage: 100MG PER DAY
     Route: 048
  5. LIPITOR [Concomitant]
     Dosage: 10MG PER DAY
     Route: 048
  6. FAMOTIDINE [Concomitant]
     Dosage: 20MG TWICE PER DAY
     Route: 048
  7. FLOMAX [Concomitant]
     Dosage: 4MG AT NIGHT
  8. HYDROCHLOROTHIAZIDE [Concomitant]
     Dosage: 12.5MG THREE TIMES PER WEEK
  9. LISINOPRIL [Concomitant]
  10. CALCITRIOL [Concomitant]
  11. FOSAMAX [Concomitant]
     Dosage: 5MG PER DAY
     Route: 048
  12. CYCLOSPORINE [Concomitant]
     Dosage: 275MG PER DAY
     Route: 048
  13. MONOPRIL [Concomitant]
     Dosage: 10MG PER DAY
     Route: 048
  14. ENDOCET [Concomitant]
     Route: 048
  15. PREDNISONE [Concomitant]
     Dosage: 7.5MG PER DAY
     Route: 048
  16. ROCALTROL [Concomitant]
     Dosage: .25MCG PER DAY
     Route: 048
  17. UNKNOWN MEDICATION [Concomitant]
     Route: 048

REACTIONS (1)
  - DRUG INEFFECTIVE [None]
